FAERS Safety Report 10249260 (Version 1)
Quarter: 2014Q2

REPORT INFORMATION
  Report Type: Spontaneous
  Country: US (occurrence: None)
  Receive Date: 20140522
  Receipt Date: 20140522
  Transmission Date: 20141212
  Serious: No
  Sender: FDA-Public Use
  Company Number: 1000066327

PATIENT
  Age: 92 Year
  Sex: Male

DRUGS (1)
  1. TUDORZA [Suspect]
     Dates: start: 2014

REACTIONS (2)
  - Cough [None]
  - Toothache [None]
